FAERS Safety Report 7914752-7 (Version None)
Quarter: 2011Q4

REPORT INFORMATION
  Report Type: 
  Country: None (occurrence: None)
  Receive Date: 20111115
  Receipt Date: 20111111
  Transmission Date: 20120403
  Serious: Yes (Death, Hospitalization)
  Sender: FDA-Public Use
  Company Number: PHHY2011AR099895

PATIENT
  Sex: Male

DRUGS (2)
  1. ONBREZ [Suspect]
     Dosage: 300 UG, QD
  2. ONBREZ [Suspect]
     Indication: LUNG DISORDER
     Dosage: 150 UG, QD

REACTIONS (4)
  - DEATH [None]
  - MUSCLE SPASMS [None]
  - BLOOD PRESSURE INCREASED [None]
  - RENAL DISORDER [None]
